FAERS Safety Report 5035059-4 (Version None)
Quarter: 2006Q2

REPORT INFORMATION
  Report Type: 
  Country: None (occurrence: None)
  Receive Date: 20060519
  Receipt Date: 20060330
  Transmission Date: 20061013
  Serious: No
  Sender: FDA-Public Use
  Company Number: TPA2006A00575

PATIENT
  Age: 71 Year
  Sex: Female
  Weight: 76.2043 kg

DRUGS (5)
  1. ROZEREM [Suspect]
     Indication: INSOMNIA
     Dosage: 8 MG, QHS, PER ORAL
     Route: 048
     Dates: start: 20060322, end: 20060330
  2. NADOLOL (NADOLOL) (80 MILLIGRAM) [Concomitant]
  3. ASPIRIN [Concomitant]
  4. PLAVIX (CLOPIDOGREL SULFATE) (75 MILLIGRAM) [Concomitant]
  5. LOTREL [Concomitant]

REACTIONS (2)
  - DRUG INEFFECTIVE [None]
  - INITIAL INSOMNIA [None]
